FAERS Safety Report 15885493 (Version 2)
Quarter: 2019Q1

REPORT INFORMATION
  Report Type: Report from Study
  Country: US (occurrence: US)
  Receive Date: 20190129
  Receipt Date: 20190212
  Transmission Date: 20190417
  Serious: No
  Sender: FDA-Public Use
  Company Number: US-PFIZER INC-2019043069

PATIENT
  Age: 62 Year
  Sex: Female

DRUGS (2)
  1. XELJANZ XR [Suspect]
     Active Substance: TOFACITINIB CITRATE
     Indication: RHEUMATOID ARTHRITIS
     Dosage: 11 MG, DAILY
  2. XARELTO [Concomitant]
     Active Substance: RIVAROXABAN
     Indication: ATRIAL FIBRILLATION
     Dosage: UNK

REACTIONS (6)
  - Disease recurrence [Unknown]
  - Nasopharyngitis [Recovering/Resolving]
  - Asthma [Unknown]
  - Dyspnoea [Recovered/Resolved]
  - Oropharyngeal pain [Unknown]
  - Ear pain [Unknown]

NARRATIVE: CASE EVENT DATE: 201901
